FAERS Safety Report 5869464-0 (Version None)
Quarter: 2008Q3

REPORT INFORMATION
  Report Type: 
  Country: None (occurrence: None)
  Receive Date: 20080829
  Receipt Date: 20080611
  Transmission Date: 20090109
  Serious: No
  Sender: FDA-Public Use
  Company Number: US023818

PATIENT
  Age: 69 Year
  Sex: Female
  Weight: 74.8435 kg

DRUGS (14)
  1. FENTORA [Suspect]
     Indication: BACK PAIN
     Dosage: 800 UG QID BUCCAL
     Route: 065
  2. FENTORA [Suspect]
     Indication: PAIN IN EXTREMITY
     Dosage: 800 UG QID BUCCAL
     Route: 065
  3. CYMBALTA [Concomitant]
  4. LYRICA [Concomitant]
  5. ZOLPIDEM [Concomitant]
  6. FOLIC ACID [Concomitant]
  7. FUROSEMIDE [Concomitant]
  8. PAROXETINE HCL [Concomitant]
  9. OMEPRAZOLE [Concomitant]
  10. WARFARIN SODIUM [Concomitant]
  11. HYDROCORTISONE TAB [Concomitant]
  12. CALCIUM [Concomitant]
  13. CENTRUM [Concomitant]
  14. VITRON-C [Concomitant]

REACTIONS (3)
  - DENTAL CARIES [None]
  - MEDICATION ERROR [None]
  - SLEEP DISORDER [None]
